FAERS Safety Report 5090846-1 (Version None)
Quarter: 2006Q3

REPORT INFORMATION
  Report Type: 
  Country: None (occurrence: None)
  Receive Date: 20060823
  Receipt Date: 20060810
  Transmission Date: 20061208
  Serious: Yes (Death, Other)
  Sender: FDA-Public Use
  Company Number: 225181

PATIENT
  Sex: 0

DRUGS (7)
  1. MABTHERA (RITUXIMAB) CONC FOR SOLUTION FOR INFUSION [Suspect]
     Indication: SYSTEMIC LUPUS ERYTHEMATOSUS
     Dosage: 325 MG/M2, Q4W, INTRAVENOUS
     Route: 042
     Dates: start: 20020818
  2. AMLODIPINE BESYLATE [Concomitant]
  3. CALCICHEW D3 (CALCIUM CARBONATE, CHOLECALCIFEROL) [Concomitant]
  4. HYDROXYCHLOROQUINE (HYDROXYCHLOROQUINE SULFATE) [Concomitant]
  5. LEVOTHYROXINE SODIUM [Concomitant]
  6. CLARITIN [Concomitant]
  7. NUVELLE (ESTRADIOL VALERATE, LEVONORGESTREL) [Concomitant]

REACTIONS (6)
  - B-LYMPHOCYTE COUNT DECREASED [None]
  - HIV INFECTION [None]
  - JC VIRUS INFECTION [None]
  - LUMBAR PUNCTURE ABNORMAL [None]
  - PNEUMONIA ASPIRATION [None]
  - PROGRESSIVE MULTIFOCAL LEUKOENCEPHALOPATHY [None]
